FAERS Safety Report 6239914-9 (Version None)
Quarter: 2009Q2

REPORT INFORMATION
  Report Type: 
  Country: None (occurrence: None)
  Receive Date: 20090619
  Receipt Date: 20090605
  Transmission Date: 20091009
  Serious: Yes (Other)
  Sender: FDA-Public Use
  Company Number: 2005169600

PATIENT
  Sex: Female

DRUGS (1)
  1. MACUGEN [Suspect]
     Indication: MACULAR DEGENERATION
     Dosage: 0.1 ML, INTRAOCULAR
     Route: 031

REACTIONS (3)
  - DISEASE PROGRESSION [None]
  - MACULAR DEGENERATION [None]
  - RETINAL HAEMORRHAGE [None]
